FAERS Safety Report 9821878 (Version 2)
Quarter: 2014Q1

REPORT INFORMATION
  Report Type: Spontaneous
  Country: US (occurrence: US)
  Receive Date: 20140116
  Receipt Date: 20140311
  Transmission Date: 20141002
  Serious: Yes (Death, Hospitalization, Other)
  Sender: FDA-Public Use
  Company Number: US-BAXTER-2014BAX001368

PATIENT
  Sex: Female

DRUGS (2)
  1. DIANEAL LOW CALCIUM [Suspect]
     Indication: PERITONEAL DIALYSIS
     Route: 033
     Dates: end: 201401
  2. DIANEAL LOW CALCIUM [Suspect]
     Indication: PERITONEAL DIALYSIS
     Route: 033
     Dates: start: 2012, end: 201401

REACTIONS (7)
  - Pulmonary embolism [Fatal]
  - Hypoxia [Fatal]
  - Respiratory failure [Fatal]
  - Fall [Recovering/Resolving]
  - Failure to thrive [Recovering/Resolving]
  - Therapy cessation [Unknown]
  - Balance disorder [Unknown]
